FAERS Safety Report 15385110 (Version 1)
Quarter: 2018Q3

REPORT INFORMATION
  Report Type: Spontaneous
  Country: US (occurrence: US)
  Receive Date: 20180907
  Receipt Date: 20180907
  Transmission Date: 20181010
  Serious: Yes (Disabling)
  Sender: FDA-Public Use
  Company Number: None

PATIENT
  Age: 28 Year
  Sex: Female
  Weight: 58.5 kg

DRUGS (1)
  1. MIRENA [Suspect]
     Active Substance: LEVONORGESTREL
     Indication: CONTRACEPTION
     Dosage: ?          OTHER FREQUENCY:IMPLANTED 4 YEARS;?
     Route: 067

REACTIONS (7)
  - Vaginal haemorrhage [None]
  - Tinnitus [None]
  - Dyspareunia [None]
  - Vision blurred [None]
  - Abdominal pain [None]
  - Memory impairment [None]
  - Migraine [None]

NARRATIVE: CASE EVENT DATE: 20120713
